FAERS Safety Report 9237989 (Version 3)
Quarter: 2013Q2

REPORT INFORMATION
  Report Type: Spontaneous
  Country: US (occurrence: None)
  Receive Date: 20130329
  Receipt Date: 20130507
  Transmission Date: 20140414
  Serious: Yes (Life-Threatening, Hospitalization)
  Sender: FDA-Public Use
  Company Number: 2013PROUSA02679

PATIENT
  Age: 67 Year
  Sex: Male
  Weight: 103.1 kg

DRUGS (14)
  1. PROVENGE [Suspect]
     Indication: PROSTATE CANCER METASTATIC
     Dosage: 250 ML, SINGLE, INTRAVENOUS
     Route: 042
     Dates: start: 20120127, end: 20120127
  2. NILUTAMIDE (NILUTAMIDE) [Concomitant]
  3. CALCIUM CITRATE (CALCIUM CITRATE) [Concomitant]
  4. MULTIVITAMIN (VITAMINS NOS) [Concomitant]
  5. PRAVASTATIN (PRAVASTATIN SODIUM) [Concomitant]
  6. SUDAFED (PSEUDOEPHEDRINE HYDROCHLORIDE) [Concomitant]
  7. VITAMIN D (COLECALCIFEROL) [Concomitant]
  8. GEMZAR (GEMCITABINE HYDROCHLORIDE) [Concomitant]
  9. NITROSTAT (GLYCERYL TRINITRATE) [Concomitant]
  10. BACTROBAN (MUPIROCIN) [Concomitant]
  11. ATROPINE (ATROPINE SULFATE) [Concomitant]
  12. PROVENTIL (SALBUTAMOL SULFATE) [Concomitant]
  13. LORTAB (HYDROCODONE BITARTRATE, PARACETAMOL) [Concomitant]
  14. AMIODARONE (AMIODARONE HYDROCHLORIDE) [Concomitant]

REACTIONS (8)
  - Disseminated intravascular coagulation [None]
  - Post concussion syndrome [None]
  - Subdural haematoma [None]
  - Haemoglobin decreased [None]
  - Haematocrit decreased [None]
  - Coagulopathy [None]
  - Loss of consciousness [None]
  - Convulsion [None]
